FAERS Safety Report 4482377-4 (Version None)
Quarter: 2004Q4

REPORT INFORMATION
  Report Type: 
  Country: None (occurrence: None)
  Receive Date: 20041022
  Receipt Date: 20031002
  Transmission Date: 20050328
  Serious: No
  Sender: FDA-Public Use
  Company Number: US-BRISTOL-MYERS SQUIBB COMPANY-12401253

PATIENT
  Age: 93 Year
  Sex: Male
  Weight: 56 kg

DRUGS (4)
  1. BUSPAR [Suspect]
     Indication: ANXIETY
     Dosage: CONSUMER TOOK 1 TAB ONCE IN MORNING-LATER THAT DAY HE COULDN'T DRIVE-D/CED DRUG THAT DAY.
     Route: 048
  2. BUSPAR [Suspect]
     Indication: DEPRESSION
     Dosage: CONSUMER TOOK 1 TAB ONCE IN MORNING-LATER THAT DAY HE COULDN'T DRIVE-D/CED DRUG THAT DAY.
     Route: 048
  3. ATIVAN [Suspect]
     Dosage: CONSUMER HAD STOPPED ATIVAN THE NITE BEFORE HE STARTED BUSPAR-^COLD TURKEY^
  4. KLONOPIN [Concomitant]

REACTIONS (2)
  - IMPAIRED DRIVING ABILITY [None]
  - PANIC ATTACK [None]
